FAERS Safety Report 6580493-4 (Version None)
Quarter: 2010Q1

REPORT INFORMATION
  Report Type: 
  Country: None (occurrence: None)
  Receive Date: 20100212
  Receipt Date: 20100210
  Transmission Date: 20100710
  Serious: Yes (Life-Threatening, Hospitalization)
  Sender: FDA-Public Use
  Company Number: US-B.I. PHARMACEUTICALS,INC./RIDGEFIELD-2010-BP-01695BP

PATIENT
  Sex: Female

DRUGS (1)
  1. SPIRIVA [Suspect]
     Indication: DYSPNOEA
     Dosage: 18 MCG
     Route: 055
     Dates: start: 20080101

REACTIONS (7)
  - COLLAPSE OF LUNG [None]
  - DEPRESSION [None]
  - DRY MOUTH [None]
  - DYSPNOEA [None]
  - EMPHYSEMA [None]
  - INFLUENZA [None]
  - PARAESTHESIA [None]
